FAERS Safety Report 5956341-X (Version None)
Quarter: 2008Q4

REPORT INFORMATION
  Report Type: 
  Country: None (occurrence: None)
  Receive Date: 20081118
  Receipt Date: 20081114
  Transmission Date: 20090506
  Serious: Yes (Life-Threatening)
  Sender: FDA-Public Use
  Company Number: PHHY2008JP28358

PATIENT
  Sex: Female

DRUGS (1)
  1. DIOVAN [Suspect]
     Indication: HYPERTENSION
     Dosage: DAILY
     Route: 048

REACTIONS (3)
  - DYSPNOEA [None]
  - OTORHINOLARYNGOLOGICAL SURGERY [None]
  - PHARYNGEAL OEDEMA [None]
